FAERS Safety Report 4691751-2 (Version None)
Quarter: 2005Q2

REPORT INFORMATION
  Report Type: 
  Country: None (occurrence: None)
  Receive Date: 20050608
  Receipt Date: 20040503
  Transmission Date: 20051028
  Serious: Yes (Other)
  Sender: FDA-Public Use
  Company Number: 364026

PATIENT

DRUGS (1)
  1. ACCUTANE [Suspect]
     Indication: ACNE
     Dosage: 2 DOSE FORM DAILY
     Dates: start: 20030901, end: 20040215

REACTIONS (2)
  - HAEMATOMA [None]
  - PREGNANCY [None]
